FAERS Safety Report 17740954 (Version 4)
Quarter: 2020Q3

REPORT INFORMATION
  Report Type: Spontaneous
  Country: US (occurrence: US)
  Receive Date: 20200504
  Receipt Date: 20200703
  Transmission Date: 20201102
  Serious: Yes (Life-Threatening, Hospitalization, Other)
  Sender: FDA-Public Use
  Company Number: US-PFIZER INC-2020175758

PATIENT
  Age: 63 Year
  Sex: Female
  Weight: 64.85 kg

DRUGS (8)
  1. REMODULIN [Suspect]
     Active Substance: TREPROSTINIL
     Indication: PULMONARY ARTERIAL HYPERTENSION
     Dosage: 0.072 UG/KG (INJECTION, 2.5MG/ML)
     Route: 042
     Dates: start: 20190712
  2. GABAPENTIN. [Suspect]
     Active Substance: GABAPENTIN
     Dosage: UNK
  3. REMODULIN [Suspect]
     Active Substance: TREPROSTINIL
     Dosage: 0.066 UG/KG (10 MG/ML, AT A DOSE OF 0.066 UG/KG)
     Route: 058
     Dates: start: 20200507
  4. REMODULIN [Suspect]
     Active Substance: TREPROSTINIL
     Dosage: 0.066 UG/KG (10 MG/ML, AT A DOSE OF 0.066 UG/KG)
     Route: 058
     Dates: start: 20200507
  5. ELIQUIS [Concomitant]
     Active Substance: APIXABAN
     Dosage: UNK
  6. ADEMPAS [Suspect]
     Active Substance: RIOCIGUAT
     Dosage: 6.25 MG, DAILY [1 TABLET IN THE MORNING, ONE?HALF IN THE AFTERNOON AND 1 IN THE EVENING]
  7. DILTIAZEM HCL [Concomitant]
     Active Substance: DILTIAZEM HYDROCHLORIDE
     Dosage: UNK
  8. ADEMPAS [Suspect]
     Active Substance: RIOCIGUAT
     Dosage: UNK

REACTIONS (8)
  - Vascular device infection [Unknown]
  - Hypotension [Unknown]
  - Respiratory failure [Unknown]
  - Urinary tract infection [Unknown]
  - Dyspnoea [Unknown]
  - Clostridium difficile infection [Unknown]
  - Sepsis [Unknown]
  - Septic shock [Unknown]

NARRATIVE: CASE EVENT DATE: 20200428
